FAERS Safety Report 22307228 (Version 10)
Quarter: 2023Q4

REPORT INFORMATION
  Report Type: Report from Study
  Country: AR (occurrence: AR)
  Receive Date: 20230511
  Receipt Date: 20231122
  Transmission Date: 20240109
  Serious: Yes (Death)
  Sender: FDA-Public Use
  Company Number: AR-AVEO PHARMACEUTICALS INC.-2023-AVEO-AR000317

PATIENT
  Age: 74 Year
  Sex: Male
  Weight: 82.2 kg

DRUGS (3)
  1. TIVOZANIB [Suspect]
     Active Substance: TIVOZANIB
     Indication: Renal cell carcinoma
     Dosage: 1.34 MG ONCE DAILY FOR 21 DAYS WITH 7 DAYS OFF TREATMENT (28-DAY CYCLE)
     Route: 048
     Dates: start: 20230327, end: 20230331
  2. LOSARTAN POTASSIUM [Concomitant]
     Active Substance: LOSARTAN POTASSIUM
     Indication: Hypertension
     Dosage: 50 MG PER DAY
     Dates: end: 2023
  3. PLENACOR D [Concomitant]
     Indication: Hypertension
     Dosage: 50 MG + 25 MG + 2.5 MG PER DAY
     Dates: end: 2023

REACTIONS (4)
  - Renal failure [Fatal]
  - Haematuria [Fatal]
  - Hypertension [Fatal]
  - Sepsis [Fatal]

NARRATIVE: CASE EVENT DATE: 20230331
